FAERS Safety Report 25843701 (Version 1)
Quarter: 2025Q3

REPORT INFORMATION
  Report Type: Report from Study
  Country: US (occurrence: US)
  Receive Date: 20250924
  Receipt Date: 20250924
  Transmission Date: 20251021
  Serious: Yes (Hospitalization, Other)
  Sender: ABBVIE
  Company Number: US-ABBVIE-6318189

PATIENT
  Age: 57 Year
  Sex: Male

DRUGS (2)
  1. RINVOQ [Suspect]
     Active Substance: UPADACITINIB
     Indication: Colitis ulcerative
     Dosage: LAST ADMINISTRATION DATE WAS 2025
     Route: 048
     Dates: start: 20250420
  2. RINVOQ [Suspect]
     Active Substance: UPADACITINIB
     Indication: Colitis ulcerative
     Route: 048

REACTIONS (15)
  - Hospitalisation [Unknown]
  - Red blood cell count decreased [Recovering/Resolving]
  - Influenza like illness [Not Recovered/Not Resolved]
  - Decreased appetite [Not Recovered/Not Resolved]
  - Balance disorder [Unknown]
  - Gait disturbance [Unknown]
  - CSF white blood cell count decreased [Recovering/Resolving]
  - Investigation abnormal [Recovering/Resolving]
  - Fall [Not Recovered/Not Resolved]
  - Rheumatoid arthritis [Unknown]
  - COVID-19 [Unknown]
  - Sepsis [Unknown]
  - Sciatica [Unknown]
  - Staphylococcal infection [Unknown]
  - Dysstasia [Unknown]

NARRATIVE: CASE EVENT DATE: 20250101
